FAERS Safety Report 16775647 (Version 1)
Quarter: 2019Q3

REPORT INFORMATION
  Report Type: Spontaneous
  Country: US (occurrence: US)
  Receive Date: 20190905
  Receipt Date: 20190905
  Transmission Date: 20191005
  Serious: Yes (Other)
  Sender: FDA-Public Use
  Company Number: US-PFIZER INC-2019374267

PATIENT
  Age: 45 Year
  Sex: Female
  Weight: 86.18 kg

DRUGS (1)
  1. RELPAX [Suspect]
     Active Substance: ELETRIPTAN HYDROBROMIDE
     Indication: MIGRAINE
     Dosage: 40 MG, AS NEEDED
     Route: 048
     Dates: start: 201906, end: 201908

REACTIONS (7)
  - Staphylococcal infection [Unknown]
  - Sinusitis [Unknown]
  - Pustular psoriasis [Unknown]
  - Skin infection [Recovered/Resolved]
  - Recalled product administered [Unknown]
  - Rash pustular [Recovering/Resolving]
  - Disease recurrence [Unknown]

NARRATIVE: CASE EVENT DATE: 201906
